FAERS Safety Report 5662083-0 (Version None)
Quarter: 2008Q1

REPORT INFORMATION
  Report Type: 
  Country: None (occurrence: None)
  Receive Date: 20080212
  Receipt Date: 20071029
  Transmission Date: 20080703
  Serious: No
  Sender: FDA-Public Use
  Company Number: WAES 0709USA04307

PATIENT
  Age: 80 Year
  Sex: Male
  Weight: 83.0083 kg

DRUGS (1)
  1. ZOLINZA [Suspect]
     Indication: NON-HODGKIN'S LYMPHOMA
     Dosage: 400 MG/DAILY/PO
     Route: 048
     Dates: start: 20070905, end: 20070914

REACTIONS (7)
  - ERYTHEMA [None]
  - NAUSEA [None]
  - PRURITUS [None]
  - RASH [None]
  - SKIN BURNING SENSATION [None]
  - SWELLING [None]
  - URTICARIA [None]
